FAERS Safety Report 4963081-2 (Version None)
Quarter: 2006Q2

REPORT INFORMATION
  Report Type: 
  Country: None (occurrence: None)
  Receive Date: 20060405
  Receipt Date: 20060105
  Transmission Date: 20061013
  Serious: Yes (Hospitalization)
  Sender: FDA-Public Use
  Company Number: JP-JPN-A200600010

PATIENT
  Age: 35 Year
  Sex: Male
  Weight: 71 kg

DRUGS (8)
  1. PAXIL [Suspect]
     Indication: DEPRESSION
     Dosage: 20MG PER DAY
     Route: 048
     Dates: end: 20050804
  2. PAXIL [Suspect]
     Dosage: 30MG PER DAY
     Route: 048
     Dates: start: 20050805, end: 20050823
  3. PAXIL [Suspect]
     Dosage: 40MG PER DAY
     Route: 048
     Dates: start: 20050824, end: 20051024
  4. PAXIL [Suspect]
     Dosage: 50MG PER DAY
     Route: 048
     Dates: start: 20051025, end: 20051030
  5. PAXIL [Suspect]
     Dosage: 60MG PER DAY
     Route: 048
     Dates: start: 20051031, end: 20051222
  6. ZYPREXA [Suspect]
     Indication: DELUSIONAL DISORDER, UNSPECIFIED TYPE
     Dosage: 30MG PER DAY
     Route: 048
     Dates: start: 20050829, end: 20051222
  7. LIMAS [Suspect]
     Indication: DEPRESSION
     Dosage: 400MG TWICE PER DAY
     Route: 048
     Dates: start: 20051114, end: 20051222
  8. MAGLAX [Concomitant]
     Indication: CONSTIPATION
     Dosage: 1980MG PER DAY
     Route: 048
     Dates: end: 20051222

REACTIONS (3)
  - ATELECTASIS [None]
  - GRAND MAL CONVULSION [None]
  - POSTICTAL PARALYSIS [None]
